FAERS Safety Report 8937397 (Version 2)
Quarter: 2012Q4

REPORT INFORMATION
  Report Type: 
  Country: US (occurrence: US)
  Receive Date: 20121130
  Receipt Date: 20121211
  Transmission Date: 20130627
  Serious: No
  Sender: FDA-Public Use
  Company Number: US-009507513-1211USA012879

PATIENT
  Age: 92 Year
  Sex: Female
  Weight: 72.56 kg

DRUGS (1)
  1. CLARITIN [Suspect]
     Indication: RHINORRHOEA
     Dosage: 10 mg, qd
     Route: 048
     Dates: start: 20121003, end: 20121020

REACTIONS (1)
  - Drug ineffective [Unknown]
